FAERS Safety Report 23671542 (Version 2)
Quarter: 2024Q2

REPORT INFORMATION
  Report Type: Spontaneous
  Country: BR (occurrence: BR)
  Receive Date: 20240326
  Receipt Date: 20240427
  Transmission Date: 20240716
  Serious: Yes (Other)
  Sender: FDA-Public Use
  Company Number: BR-Accord-414377

PATIENT
  Age: 41 Year
  Sex: Female
  Weight: 68.5 kg

DRUGS (8)
  1. PACLITAXEL [Suspect]
     Active Substance: PACLITAXEL
     Indication: Invasive breast carcinoma
     Dosage: 28.8 MG
     Route: 042
     Dates: start: 20230828, end: 20230828
  2. BROMOPRIDE [Concomitant]
     Active Substance: BROMOPRIDE
     Dosage: 10MG - 1 TABLET 8/8 HOURS
     Route: 048
     Dates: start: 20230810, end: 20231210
  3. DEXAMETHASONE [Concomitant]
     Active Substance: DEXAMETHASONE
     Route: 042
     Dates: start: 20230828, end: 20230828
  4. DIPHENHYDRAMINE HYDROCHLORIDE [Concomitant]
     Active Substance: DIPHENHYDRAMINE HYDROCHLORIDE
     Route: 042
     Dates: start: 20230828, end: 20230828
  5. OMEPRAZOLE [Concomitant]
     Active Substance: OMEPRAZOLE
     Dosage: 20MG - 1 TABLET DAILY
     Route: 048
     Dates: start: 20230828, end: 20230828
  6. ONDANSETRON [Concomitant]
     Active Substance: ONDANSETRON
     Route: 042
     Dates: start: 20230828, end: 20230828
  7. ACETAMINOPHEN [Concomitant]
     Active Substance: ACETAMINOPHEN
     Indication: Analgesic therapy
     Dosage: 500MG - 1 TABLET 8/8 HOURS
     Route: 048
     Dates: start: 20230814, end: 20230914
  8. DEXAMETHASONE [Concomitant]
     Active Substance: DEXAMETHASONE
     Dosage: 1 TAB IN THE NIGHT BEFORE AND 1 TAB IN THE MORNING OF CHEMOTHERAPY AND THE 1 TAB 12/12 FOR 2 DAYS
     Route: 048
     Dates: start: 20230827, end: 20230830

REACTIONS (5)
  - Chills [Recovered/Resolved]
  - Ocular hyperaemia [Recovered/Resolved]
  - Chest discomfort [Recovered/Resolved]
  - Flushing [Recovered/Resolved]
  - Tachycardia [Recovered/Resolved]

NARRATIVE: CASE EVENT DATE: 20230828
